FAERS Safety Report 13925566 (Version 2)
Quarter: 2017Q4

REPORT INFORMATION
  Report Type: Spontaneous
  Country: US (occurrence: US)
  Receive Date: 20170831
  Receipt Date: 20171130
  Transmission Date: 20180320
  Serious: No
  Sender: FDA-Public Use
  Company Number: US-SA-2017SA139509

PATIENT
  Age: 62 Year
  Sex: Male

DRUGS (4)
  1. SOLIQUA 100/33 [Suspect]
     Active Substance: INSULIN GLARGINE\LIXISENATIDE
     Indication: TYPE 2 DIABETES MELLITUS
     Dosage: DOSE:17 UNIT(S)
     Route: 051
     Dates: start: 2017
  2. SOLIQUA 100/33 [Suspect]
     Active Substance: INSULIN GLARGINE\LIXISENATIDE
     Indication: TYPE 2 DIABETES MELLITUS
     Route: 051
     Dates: start: 20170721
  3. SOLOSTAR [Suspect]
     Active Substance: DEVICE
     Indication: TYPE 2 DIABETES MELLITUS
     Dates: start: 20170721
  4. SOLOSTAR [Suspect]
     Active Substance: DEVICE
     Indication: TYPE 2 DIABETES MELLITUS
     Dates: start: 2017

REACTIONS (8)
  - Hyperglycaemia [Unknown]
  - Paraesthesia oral [Unknown]
  - Paraesthesia [Not Recovered/Not Resolved]
  - Hypoaesthesia [Unknown]
  - Hypoaesthesia eye [Unknown]
  - Hypoaesthesia oral [Unknown]
  - Hypoaesthesia [Not Recovered/Not Resolved]
  - Paraesthesia [Unknown]

NARRATIVE: CASE EVENT DATE: 20170724
